FAERS Safety Report 8339997-6 (Version None)
Quarter: 2012Q2

REPORT INFORMATION
  Report Type: 
  Country: None (occurrence: None)
  Receive Date: 20120502
  Receipt Date: 20120502
  Transmission Date: 20120825
  Serious: Yes (Other)
  Sender: FDA-Public Use
  Company Number: None

PATIENT
  Sex: Female

DRUGS (7)
  1. LEXAPRO [Suspect]
     Indication: BIPOLAR I DISORDER
     Dosage: 20MG ONE QHS P.O.
     Route: 048
     Dates: start: 20120409, end: 20120416
  2. GLUCOPHAGE [Concomitant]
  3. VESICARE [Concomitant]
  4. ZYPREXA [Concomitant]
  5. SYNTHROID [Concomitant]
  6. WELLBUTRIN XL [Concomitant]
  7. LITHOBID 450 MG [Concomitant]

REACTIONS (3)
  - SUICIDAL IDEATION [None]
  - DEPRESSION [None]
  - PRODUCT SUBSTITUTION ISSUE [None]
